FAERS Safety Report 13139605 (Version 1)
Quarter: 2017Q1

REPORT INFORMATION
  Report Type: Spontaneous
  Country: US (occurrence: US)
  Receive Date: 20170123
  Receipt Date: 20170123
  Transmission Date: 20170428
  Serious: No
  Sender: FDA-Public Use
  Company Number: US-REGENERON PHARMACEUTICALS, INC.-2016-22089

PATIENT

DRUGS (3)
  1. EYLEA [Suspect]
     Active Substance: AFLIBERCEPT
     Dosage: EVERY 6 WEEKS
  2. EYLEA [Suspect]
     Active Substance: AFLIBERCEPT
     Indication: MACULAR DEGENERATION
     Dosage: EVERY 8 WEEKS
  3. EYLEA [Suspect]
     Active Substance: AFLIBERCEPT
     Dosage: EVERY 3 WEEKS

REACTIONS (1)
  - Drug ineffective [Recovered/Resolved]
